FAERS Safety Report 5296451-6 (Version None)
Quarter: 2007Q2

REPORT INFORMATION
  Report Type: 
  Country: None (occurrence: None)
  Receive Date: 20070413
  Receipt Date: 20070403
  Transmission Date: 20071010
  Serious: Yes (Other)
  Sender: FDA-Public Use
  Company Number: US-SANOFI-SYNTHELABO-A03200607389

PATIENT
  Sex: Female
  Weight: 78.5 kg

DRUGS (11)
  1. AMBIEN [Suspect]
     Indication: INSOMNIA
     Route: 048
     Dates: start: 20010901
  2. AMBIEN [Suspect]
     Route: 048
     Dates: start: 20040101, end: 20040101
  3. SINGULAIR [Concomitant]
     Dosage: UNK
     Route: 048
  4. ADVAIR DISKUS 100/50 [Concomitant]
     Dosage: UNK
     Route: 055
  5. ALBUTEROL [Concomitant]
     Route: 065
  6. ESTRADIOL [Concomitant]
     Dosage: UNK
     Route: 065
  7. BENICAR [Concomitant]
     Route: 048
  8. NEXIUM [Concomitant]
     Route: 048
  9. SEROQUEL [Concomitant]
     Dosage: UNK
     Route: 048
  10. SEROQUEL [Concomitant]
     Dosage: UNK
     Route: 048
  11. WELLBUTRIN [Suspect]
     Indication: DRUG USE FOR UNKNOWN INDICATION
     Dosage: UNK
     Route: 048

REACTIONS (16)
  - ABNORMAL BEHAVIOUR [None]
  - AGGRESSION [None]
  - AMNESIA [None]
  - BACK PAIN [None]
  - CONFUSIONAL STATE [None]
  - DRUG DEPENDENCE [None]
  - HOMICIDAL IDEATION [None]
  - INCONTINENCE [None]
  - INTENTIONAL OVERDOSE [None]
  - LACRIMATION INCREASED [None]
  - MAJOR DEPRESSION [None]
  - PANIC ATTACK [None]
  - SUICIDAL IDEATION [None]
  - TINNITUS [None]
  - VISION BLURRED [None]
  - VISUAL ACUITY REDUCED [None]
